FAERS Safety Report 8243255-8 (Version None)
Quarter: 2012Q1

REPORT INFORMATION
  Report Type: 
  Country: None (occurrence: None)
  Receive Date: 20120329
  Receipt Date: 20120322
  Transmission Date: 20120608
  Serious: Yes (Other)
  Sender: FDA-Public Use
  Company Number: US-JNJFOC-20111201698

PATIENT
  Age: 71 Year
  Sex: Female

DRUGS (12)
  1. BENADRYL [Suspect]
     Indication: URTICARIA
     Dosage: DILUTED UP TO 10 CC
     Route: 042
     Dates: start: 20110812, end: 20110812
  2. SOLU-MEDROL [Suspect]
     Indication: PRURITUS
     Dosage: DILUTED UP TO 10 ML
     Route: 042
     Dates: start: 20110812
  3. FENTANYL [Concomitant]
     Route: 061
  4. BENADRYL [Suspect]
     Indication: PREMEDICATION
     Route: 042
     Dates: start: 20110816, end: 20110816
  5. SOLU-MEDROL [Suspect]
     Indication: URTICARIA
     Dosage: DILUTED UP TO 10 ML
     Route: 042
     Dates: start: 20110812
  6. BENADRYL [Suspect]
     Dosage: DILUTED UP TO 10 CC
     Route: 042
     Dates: start: 20110812, end: 20110812
  7. BENADRYL [Suspect]
     Route: 042
     Dates: start: 20110816, end: 20110816
  8. BENADRYL [Suspect]
     Route: 042
     Dates: start: 20110816, end: 20110816
  9. CINRYZE [Suspect]
     Indication: PROPHYLAXIS
     Dosage: EVERY THREE TO FOUR DAYS OR AS REQUIRED
     Route: 042
     Dates: start: 20110812
  10. AMLODIPINE [Concomitant]
     Indication: PRODUCT USED FOR UNKNOWN INDICATION
     Route: 048
     Dates: start: 20110701
  11. FENTANYL [Concomitant]
     Indication: PRODUCT USED FOR UNKNOWN INDICATION
     Route: 061
  12. BENADRYL [Suspect]
     Indication: PRURITUS
     Dosage: DILUTED UP TO 10 CC
     Route: 042
     Dates: start: 20110812, end: 20110812

REACTIONS (1)
  - ANAPHYLACTIC REACTION [None]
